FAERS Safety Report 23533756 (Version 2)
Quarter: 2024Q1

REPORT INFORMATION
  Report Type: Spontaneous
  Country: US (occurrence: US)
  Receive Date: 20240216
  Receipt Date: 20240223
  Transmission Date: 20240410
  Serious: No
  Sender: FDA-Public Use
  Company Number: US-PFIZER INC-PV202400021837

PATIENT
  Age: 80 Year
  Sex: Male
  Weight: 75.4 kg

DRUGS (1)
  1. INLYTA [Suspect]
     Active Substance: AXITINIB
     Indication: Breast cancer male
     Dosage: TAKE 1 TABLET ONCE A DAY. TAKE FOR 21 DAYS FOLLOWED BY 7 DAYS OFF
     Route: 048

REACTIONS (3)
  - Neoplasm progression [Unknown]
  - Wrong strength [Unknown]
  - Off label use [Unknown]
